FAERS Safety Report 19740281 (Version 1)
Quarter: 2021Q3

REPORT INFORMATION
  Report Type: Spontaneous
  Country: CN (occurrence: CN)
  Receive Date: 20210823
  Receipt Date: 20210823
  Transmission Date: 20211014
  Serious: Yes (Other)
  Sender: FDA-Public Use
  Company Number: CN-ROCHE-2893580

PATIENT
  Age: 50 Year
  Sex: Female

DRUGS (3)
  1. CARBOPLATIN. [Suspect]
     Active Substance: CARBOPLATIN
     Indication: SMALL CELL LUNG CANCER
     Dosage: ON 25/DEC/2020, 18/FEB/2021, 30/MAR/2021 AND 30/APR/2021
     Route: 065
     Dates: start: 20201110
  2. TECENTRIQ [Suspect]
     Active Substance: ATEZOLIZUMAB
     Indication: SMALL CELL LUNG CANCER
     Dosage: NEXT DOSE RECEIVED ON 18 FEB 2021, 30 MAR/2021, 30/APR/2021 AND 10/JUN/2021
     Route: 041
     Dates: start: 20201225
  3. ETOPOSIDE. [Suspect]
     Active Substance: ETOPOSIDE
     Indication: SMALL CELL LUNG CANCER
     Dosage: NEXT DOSE RECEIVED ON 25/DEC/2020, 18/FEB/2021, 30/MAR/2021, AND 30/APR/2021
     Route: 065
     Dates: start: 20201110

REACTIONS (3)
  - Myelosuppression [Unknown]
  - Gastrointestinal disorder [Unknown]
  - Asthenia [Unknown]
